FAERS Safety Report 7852262-6 (Version None)
Quarter: 2011Q4

REPORT INFORMATION
  Report Type: 
  Country: None (occurrence: None)
  Receive Date: 20111026
  Receipt Date: 20111014
  Transmission Date: 20120403
  Serious: Yes (Death)
  Sender: FDA-Public Use
  Company Number: CO-ELI_LILLY_AND_COMPANY-CO201110004258

PATIENT
  Age: 85 Year
  Sex: Female

DRUGS (2)
  1. FORTEO [Suspect]
     Indication: OSTEOPOROSIS
     Dosage: 20 UG, QD
     Route: 058
     Dates: start: 20110913
  2. CALCIUM +VIT D [Concomitant]
     Indication: SUPPLEMENTATION THERAPY

REACTIONS (4)
  - APATHY [None]
  - DEATH [None]
  - VARICES OESOPHAGEAL [None]
  - DECREASED APPETITE [None]
